FAERS Safety Report 6403731-7 (Version None)
Quarter: 2009Q4

REPORT INFORMATION
  Report Type: 
  Country: None (occurrence: None)
  Receive Date: 20091015
  Receipt Date: 20091015
  Transmission Date: 20100525
  Serious: Yes (Other)
  Sender: FDA-Public Use
  Company Number: None

PATIENT
  Age: 26 Year
  Sex: Female
  Weight: 81.6475 kg

DRUGS (1)
  1. MIRENA [Suspect]
     Indication: CONTRACEPTION
     Dosage: 1 IUD 5YEARS INTRA-UTERINE
     Route: 015

REACTIONS (5)
  - ACNE [None]
  - ALOPECIA [None]
  - DEPRESSION [None]
  - HEADACHE [None]
  - WEIGHT INCREASED [None]
